FAERS Safety Report 6713552-3 (Version None)
Quarter: 2010Q2

REPORT INFORMATION
  Report Type: 
  Country: None (occurrence: None)
  Receive Date: 20100503
  Receipt Date: 20100423
  Transmission Date: 20101027
  Serious: Yes (Hospitalization)
  Sender: FDA-Public Use
  Company Number: A20100633

PATIENT
  Sex: Male

DRUGS (3)
  1. LEVOFLOXACIN [Suspect]
     Indication: EYE INFECTION
     Dosage: IO
     Route: 031
     Dates: start: 20100210
  2. CEFCAPENE PIVOXIL HYDROCHLORIDE [Suspect]
     Dosage: 300MG PO
     Route: 048
     Dates: start: 20100209, end: 20100216
  3. DICLOFENAC SODIUM [Concomitant]

REACTIONS (1)
  - DIARRHOEA [None]
